FAERS Safety Report 5009799-7 (Version None)
Quarter: 2006Q2

REPORT INFORMATION
  Report Type: 
  Country: None (occurrence: None)
  Receive Date: 20060522
  Receipt Date: 20060511
  Transmission Date: 20061013
  Serious: Yes (Other)
  Sender: FDA-Public Use
  Company Number: 14040

PATIENT
  Sex: Female

DRUGS (1)
  1. MITOXANTRONE [Suspect]
     Indication: MULTIPLE SCLEROSIS
     Dosage: 20 MG MONTHLY UNK

REACTIONS (6)
  - ACUTE MYELOID LEUKAEMIA [None]
  - EJECTION FRACTION DECREASED [None]
  - HAEMORRHAGE [None]
  - NEUTROPENIA [None]
  - RESPIRATORY DISTRESS [None]
  - SEPSIS [None]
